FAERS Safety Report 6496023-1 (Version None)
Quarter: 2009Q4

REPORT INFORMATION
  Report Type: 
  Country: None (occurrence: None)
  Receive Date: 20091214
  Receipt Date: 20090916
  Transmission Date: 20100525
  Serious: No
  Sender: FDA-Public Use
  Company Number: US-BRISTOL-MYERS SQUIBB COMPANY-14782155

PATIENT
  Age: 35 Year
  Sex: Female

DRUGS (3)
  1. ABILIFY [Suspect]
     Route: 048
  2. CLONAZEPAM [Concomitant]
  3. AMBIEN [Concomitant]
     Indication: INSOMNIA
     Dosage: QD AT HS
     Route: 048

REACTIONS (2)
  - AKATHISIA [None]
  - MUSCULOSKELETAL STIFFNESS [None]
